FAERS Safety Report 5323478-8 (Version None)
Quarter: 2007Q2

REPORT INFORMATION
  Report Type: 
  Country: None (occurrence: None)
  Receive Date: 20070514
  Receipt Date: 20070510
  Transmission Date: 20071010
  Serious: Yes (Other)
  Sender: FDA-Public Use
  Company Number: PHNU2007DE00978

PATIENT
  Sex: Male

DRUGS (7)
  1. ZOMETA [Suspect]
     Indication: MULTIPLE MYELOMA
     Dosage: 4 MG, QMO
     Route: 042
     Dates: start: 20030701, end: 20061001
  2. CYCLOPHOSPHAMIDE + ADRIAMYCIN + PREDNISOLONE [Concomitant]
     Indication: PLASMACYTOMA
     Dosage: 3 CYCLES
     Route: 065
     Dates: end: 20031101
  3. VINCRISTINE [Concomitant]
     Indication: PLASMACYTOMA
     Route: 065
     Dates: end: 20031101
  4. ENDOXAN [Concomitant]
     Route: 065
  5. MELPHALAN [Concomitant]
     Dosage: HIGH DOSE
     Route: 065
     Dates: start: 20031101
  6. BORTEZOMIB [Concomitant]
     Route: 065
     Dates: start: 20051201, end: 20060401
  7. ANTIBIOTICS [Concomitant]
     Indication: OSTEONECROSIS
     Route: 065

REACTIONS (6)
  - ACTINOMYCOSIS [None]
  - BIOPSY SITE UNSPECIFIED ABNORMAL [None]
  - DENTAL TREATMENT [None]
  - HISTOLOGY ABNORMAL [None]
  - OSTEOMYELITIS [None]
  - OSTEONECROSIS [None]
